FAERS Safety Report 4739161-3 (Version None)
Quarter: 2005Q3

REPORT INFORMATION
  Report Type: 
  Country: None (occurrence: None)
  Receive Date: 20050810
  Receipt Date: 20050429
  Transmission Date: 20060218
  Serious: No
  Sender: FDA-Public Use
  Company Number: US-GLAXOSMITHKLINE-A0556336A

PATIENT
  Age: 60 Year
  Sex: Female

DRUGS (3)
  1. PAXIL CR [Suspect]
     Dosage: 12.5MG PER DAY
     Route: 048
  2. FOSAMAX [Concomitant]
  3. SYNTHROID [Concomitant]

REACTIONS (2)
  - IMPATIENCE [None]
  - INSOMNIA [None]
